FAERS Safety Report 7680765-6 (Version None)
Quarter: 2011Q3

REPORT INFORMATION
  Report Type: 
  Country: None (occurrence: None)
  Receive Date: 20110812
  Receipt Date: 20110801
  Transmission Date: 20111222
  Serious: Yes (Hospitalization, Other)
  Sender: FDA-Public Use
  Company Number: US-JNJFOC-20100500602

PATIENT
  Sex: Female
  Weight: 57.5 kg

DRUGS (5)
  1. PREDNISONE [Concomitant]
  2. REMICADE [Suspect]
     Indication: CROHN'S DISEASE
     Route: 042
     Dates: start: 20080310
  3. METRONIDAZOLE [Concomitant]
  4. HUMIRA [Concomitant]
  5. REMICADE [Suspect]
     Dosage: TOTAL 13 DOSES
     Route: 042
     Dates: start: 20091019

REACTIONS (9)
  - HAEMORRHAGE [None]
  - NAUSEA [None]
  - CROHN'S DISEASE [None]
  - POST PROCEDURAL INFECTION [None]
  - CONDITION AGGRAVATED [None]
  - MASS [None]
  - DIARRHOEA [None]
  - ARTHRALGIA [None]
  - ABDOMINAL PAIN [None]
